FAERS Safety Report 18400446 (Version 2)
Quarter: 2020Q4

REPORT INFORMATION
  Report Type: Spontaneous
  Country: DE (occurrence: DE)
  Receive Date: 20201019
  Receipt Date: 20201027
  Transmission Date: 20210114
  Serious: Yes (Hospitalization, Other)
  Sender: FDA-Public Use
  Company Number: DE-PFIZER INC-2020397908

PATIENT
  Age: 35 Year
  Sex: Male

DRUGS (1)
  1. TAVOR EXPIDET [Suspect]
     Active Substance: LORAZEPAM
     Dosage: 1 MG, 3X/DAY
     Dates: start: 20200615, end: 20200623

REACTIONS (8)
  - Aggression [Recovering/Resolving]
  - Gait disturbance [Recovering/Resolving]
  - Dyspnoea [Recovered/Resolved]
  - Food refusal [Unknown]
  - Suicidal behaviour [Recovered/Resolved]
  - Personality change [Recovering/Resolving]
  - Loss of consciousness [Recovered/Resolved]
  - Urinary incontinence [Recovered/Resolved]

NARRATIVE: CASE EVENT DATE: 202006
